FAERS Safety Report 6527511-7 (Version None)
Quarter: 2010Q1

REPORT INFORMATION
  Report Type: 
  Country: None (occurrence: None)
  Receive Date: 20100105
  Receipt Date: 20091228
  Transmission Date: 20100710
  Serious: Yes (Other)
  Sender: FDA-Public Use
  Company Number: US-AMGEN-US348115

PATIENT
  Age: 13 Year
  Sex: Female
  Weight: 59.5 kg

DRUGS (4)
  1. ENBREL [Suspect]
     Indication: JUVENILE ARTHRITIS
     Route: 058
     Dates: start: 20090220
  2. ENBREL [Suspect]
     Indication: PSORIATIC ARTHROPATHY
  3. MOBIC [Concomitant]
     Route: 048
     Dates: start: 20080601
  4. METHOTREXATE [Concomitant]
     Route: 058
     Dates: start: 20080801

REACTIONS (3)
  - ATAXIA [None]
  - SYNCOPE [None]
  - VISUAL IMPAIRMENT [None]
